FAERS Safety Report 10678332 (Version 1)
Quarter: 2014Q4

REPORT INFORMATION
  Report Type: Spontaneous
  Country: US (occurrence: None)
  Receive Date: 20141224
  Receipt Date: 20141224
  Transmission Date: 20150529
  Serious: No
  Sender: FDA-Public Use
  Company Number: None

PATIENT
  Age: 57 Year
  Sex: Female
  Weight: 49.9 kg

DRUGS (1)
  1. PROLIA [Suspect]
     Active Substance: DENOSUMAB
     Indication: OSTEOPOROSIS
     Dosage: 1 INJECTION?
     Dates: start: 20141210, end: 20141223

REACTIONS (5)
  - Rash [None]
  - Arthralgia [None]
  - Pain [None]
  - Pruritus [None]
  - Sleep disorder [None]

NARRATIVE: CASE EVENT DATE: 20141210
